FAERS Safety Report 4438619-4 (Version None)
Quarter: 2004Q3

REPORT INFORMATION
  Report Type: 
  Country: None (occurrence: None)
  Receive Date: 20040728
  Receipt Date: 20040504
  Transmission Date: 20050211
  Serious: No
  Sender: FDA-Public Use
  Company Number: USA040566683

PATIENT
  Age: 46 Year
  Sex: Female
  Weight: 114 kg

DRUGS (4)
  1. STRATTERA [Suspect]
     Indication: THINKING ABNORMAL
     Dosage: 80 MG DAY
     Dates: start: 20040301, end: 20040501
  2. MIRAPEX (MIRAPEX) [Concomitant]
  3. HYDROCODONE [Concomitant]
  4. EFFEXOR [Concomitant]

REACTIONS (1)
  - OEDEMA PERIPHERAL [None]
